FAERS Safety Report 7775233-7 (Version None)
Quarter: 2011Q3

REPORT INFORMATION
  Report Type: 
  Country: None (occurrence: None)
  Receive Date: 20110923
  Receipt Date: 20110913
  Transmission Date: 20111222
  Serious: Yes (Hospitalization)
  Sender: FDA-Public Use
  Company Number: FR-MERCK-1109FRA00071

PATIENT

DRUGS (3)
  1. JANUMET [Suspect]
     Route: 048
  2. METFORMIN HCL [Suspect]
     Route: 048
  3. JANUMET [Suspect]
     Route: 048

REACTIONS (3)
  - GASTROINTESTINAL DISORDER [None]
  - VOMITING [None]
  - OVERDOSE [None]
